FAERS Safety Report 8209885-4 (Version None)
Quarter: 2012Q1

REPORT INFORMATION
  Report Type: 
  Country: None (occurrence: None)
  Receive Date: 20120314
  Receipt Date: 20120305
  Transmission Date: 20120608
  Serious: Yes (Other)
  Sender: FDA-Public Use
  Company Number: US-ROCHE-1045517

PATIENT

DRUGS (12)
  1. METHOTREXATE [Suspect]
     Indication: CENTRAL NERVOUS SYSTEM LYMPHOMA
     Dosage: DOSE: 8 G/M2 OVER 4 HOURS ON DAY 1 OF EACH 14 DAY CYCLE
     Route: 042
  2. VINCRISTINE [Suspect]
     Indication: CENTRAL NERVOUS SYSTEM LYMPHOMA
  3. CYCLOPHOSPHAMIDE [Suspect]
     Indication: CENTRAL NERVOUS SYSTEM LYMPHOMA
  4. CYTARABINE [Suspect]
     Indication: CENTRAL NERVOUS SYSTEM LYMPHOMA
  5. LEUCOVORIN CALCIUM [Concomitant]
     Indication: CENTRAL NERVOUS SYSTEM LYMPHOMA
     Route: 042
  6. ETOPOSIDE [Suspect]
     Indication: CENTRAL NERVOUS SYSTEM LYMPHOMA
  7. PREDNISONE [Suspect]
     Indication: CENTRAL NERVOUS SYSTEM LYMPHOMA
  8. MABTHERA [Suspect]
     Indication: CENTRAL NERVOUS SYSTEM LYMPHOMA
     Dosage: ON DAY 3 OF EACH CYCLE
     Route: 042
  9. TEMOZOLOMIDE [Suspect]
     Indication: CENTRAL NERVOUS SYSTEM LYMPHOMA
     Dosage: ON DAY 7-11 FOR ODD NUMBERED 4 CYCLES
     Route: 048
  10. ACETAMINOPHEN [Concomitant]
  11. DOXORUBICIN HYDROCHLORIDE [Suspect]
     Indication: CENTRAL NERVOUS SYSTEM LYMPHOMA
  12. DIPHENHYDRAMINE HCL [Concomitant]
     Dosage: DOSE: 25-50 MG

REACTIONS (5)
  - ANAEMIA [None]
  - NEUTROPENIA [None]
  - THROMBOCYTOPENIA [None]
  - FEBRILE NEUTROPENIA [None]
  - TRANSAMINASES INCREASED [None]
